FAERS Safety Report 10542300 (Version 1)
Quarter: 2014Q4

REPORT INFORMATION
  Report Type: Spontaneous
  Country: US (occurrence: None)
  Receive Date: 20141010
  Receipt Date: 20141010
  Transmission Date: 20150529
  Serious: Yes (Hospitalization)
  Sender: FDA-Public Use
  Company Number: 163-POMAL-14052885

PATIENT
  Age: 58 Year
  Sex: Male

DRUGS (3)
  1. KYPROLIS (CARFILZOMIB) (INJECTION) [Concomitant]
  2. POMALYST [Suspect]
     Active Substance: POMALIDOMIDE
     Indication: PLASMA CELL MYELOMA
     Dosage: 1 MG, 1 IN 1 D, PO
     Route: 048
     Dates: start: 20131106
  3. PALONOSETRON (INJECTION) [Concomitant]

REACTIONS (2)
  - Pneumonia [None]
  - Plasma cell myeloma recurrent [None]

NARRATIVE: CASE EVENT DATE: 20140512
